FAERS Safety Report 12676763 (Version 4)
Quarter: 2022Q2

REPORT INFORMATION
  Report Type: Report from Study
  Country: MX (occurrence: MX)
  Receive Date: 20160823
  Receipt Date: 20220607
  Transmission Date: 20220721
  Serious: Yes (Hospitalization, Other)
  Sender: FDA-Public Use
  Company Number: MX-BRISTOL-MYERS SQUIBB COMPANY-BMS-2016-046617

PATIENT
  Age: 70 Year
  Sex: Male
  Weight: 113 kg

DRUGS (15)
  1. IPILIMUMAB [Suspect]
     Active Substance: IPILIMUMAB
     Indication: Non-small cell lung cancer
     Route: 042
     Dates: start: 20160519, end: 20160610
  2. ASPIRIN [Concomitant]
     Active Substance: ASPIRIN
     Indication: Product used for unknown indication
     Dosage: 100 MG, UNK
     Route: 065
  3. AMLODIPINO                         /00972401/ [Concomitant]
     Indication: Product used for unknown indication
     Dosage: 5 MG, UNK
     Route: 065
  4. ATENOLOL [Concomitant]
     Active Substance: ATENOLOL
     Indication: Product used for unknown indication
     Dosage: 12.5 MG, UNK
     Route: 065
  5. DIOSMINA                           /00426001/ [Concomitant]
     Indication: Product used for unknown indication
     Dosage: 500 MG, UNK
     Route: 065
  6. OMEPRAZOL                          /00661201/ [Concomitant]
     Indication: Product used for unknown indication
     Dosage: 40 MG, UNK
     Route: 065
  7. PANCREATINA [Concomitant]
     Indication: Product used for unknown indication
     Dosage: 175 MG, UNK
     Route: 065
  8. TAMSULOSIN HYDROCHLORIDE [Concomitant]
     Active Substance: TAMSULOSIN HYDROCHLORIDE
     Indication: Product used for unknown indication
     Dosage: 4 MG, UNK
     Route: 065
  9. TRIMEBUTINA                        /00465201/ [Concomitant]
     Indication: Product used for unknown indication
     Dosage: 100 MG, UNK
     Route: 065
  10. VANCOMYCIN [Concomitant]
     Active Substance: VANCOMYCIN
     Indication: Product used for unknown indication
     Route: 065
  11. MEROPENEM [Concomitant]
     Active Substance: MEROPENEM
     Indication: Product used for unknown indication
     Route: 065
  12. METILPREDNISOLONA                  /00049601/ [Concomitant]
     Indication: Product used for unknown indication
     Route: 065
  13. SALOFALK                           /00000301/ [Concomitant]
     Indication: Product used for unknown indication
     Route: 065
  14. TRAMADOL HYDROCHLORIDE [Concomitant]
     Active Substance: TRAMADOL HYDROCHLORIDE
     Indication: Product used for unknown indication
     Route: 065
  15. INFLIXIMAB [Concomitant]
     Active Substance: INFLIXIMAB
     Indication: Product used for unknown indication
     Route: 065

REACTIONS (1)
  - Enterocolitis haemorrhagic [Recovered/Resolved]

NARRATIVE: CASE EVENT DATE: 20160611
